FAERS Safety Report 17331852 (Version 1)
Quarter: 2020Q1

REPORT INFORMATION
  Report Type: Spontaneous
  Country: US (occurrence: US)
  Receive Date: 20200127
  Receipt Date: 20200127
  Transmission Date: 20200409
  Serious: Yes (Other)
  Sender: FDA-Public Use
  Company Number: US-BEH-2020111898

PATIENT
  Age: 35 Year
  Sex: Male

DRUGS (6)
  1. IDELVION [Suspect]
     Active Substance: COAGULATION FACTOR IX RECOMBINANT HUMAN
     Indication: FACTOR IX DEFICIENCY
     Dosage: 1051 INTERNATIONAL UNIT, QW
     Route: 042
     Dates: start: 20200111
  2. IDELVION [Suspect]
     Active Substance: COAGULATION FACTOR IX RECOMBINANT HUMAN
     Indication: FACTOR IX DEFICIENCY
     Dosage: 1051 INTERNATIONAL UNIT, QW
     Route: 042
     Dates: start: 20200111
  3. IDELVION [Suspect]
     Active Substance: COAGULATION FACTOR IX RECOMBINANT HUMAN
     Dosage: 343 INTERNATIONAL UNITS
     Route: 042
     Dates: start: 20200111
  4. IDELVION [Suspect]
     Active Substance: COAGULATION FACTOR IX RECOMBINANT HUMAN
     Dosage: 343 INTERNATIONAL UNITS
     Route: 042
     Dates: start: 20200111
  5. IDELVION [Suspect]
     Active Substance: COAGULATION FACTOR IX RECOMBINANT HUMAN
     Dosage: 2166 INTERNATIONAL UNITS
     Route: 042
  6. IDELVION [Suspect]
     Active Substance: COAGULATION FACTOR IX RECOMBINANT HUMAN
     Dosage: 2166 INTERNATIONAL UNITS
     Route: 042

REACTIONS (3)
  - Arthralgia [Unknown]
  - Haemarthrosis [Unknown]
  - Anxiety [Unknown]
